FAERS Safety Report 6186885-X (Version None)
Quarter: 2009Q2

REPORT INFORMATION
  Report Type: 
  Country: None (occurrence: None)
  Receive Date: 20090512
  Receipt Date: 20090305
  Transmission Date: 20091009
  Serious: No
  Sender: FDA-Public Use
  Company Number: US-BAYER-200915608NA

PATIENT
  Age: 29 Year
  Sex: Female
  Weight: 105 kg

DRUGS (1)
  1. MIRENA [Suspect]
     Indication: CONTRACEPTION
     Dosage: CONTINUOUS
     Route: 015
     Dates: start: 20070301

REACTIONS (4)
  - DIZZINESS [None]
  - HYPERTENSION [None]
  - OVARIAN CYST [None]
  - VAGINAL DISCHARGE [None]
